FAERS Safety Report 6012300-2 (Version None)
Quarter: 2008Q4

REPORT INFORMATION
  Report Type: 
  Country: None (occurrence: None)
  Receive Date: 20081218
  Receipt Date: 20081106
  Transmission Date: 20090506
  Serious: No
  Sender: FDA-Public Use
  Company Number: US-ASTRAZENECA-2008UW24855

PATIENT
  Age: 81 Year
  Sex: Male
  Weight: 72.6 kg

DRUGS (8)
  1. SYMBICORT [Suspect]
     Indication: CHRONIC OBSTRUCTIVE PULMONARY DISEASE
     Dosage: 160 MCG, 2 PUFFS TWICE DAILY
     Route: 055
     Dates: start: 20081103
  2. ALLIOPURINOL [Concomitant]
  3. FOSINOPRIL SODIUM [Concomitant]
  4. ALBUTEROL [Concomitant]
  5. LOVASTATIN [Concomitant]
  6. DAILYBITE [Concomitant]
  7. DILTIAZEM [Concomitant]
  8. DOXAZOSIN MESYLATE [Concomitant]

REACTIONS (2)
  - COUGH [None]
  - THROAT IRRITATION [None]
